FAERS Safety Report 17273876 (Version 5)
Quarter: 2020Q3

REPORT INFORMATION
  Report Type: Report from Study
  Country: US (occurrence: US)
  Receive Date: 20200115
  Receipt Date: 20200814
  Transmission Date: 20201102
  Serious: Yes (Hospitalization)
  Sender: FDA-Public Use
  Company Number: US-ACTELION-A-US2016-131874

PATIENT
  Sex: Female
  Weight: 63.04 kg

DRUGS (5)
  1. VELETRI [Suspect]
     Active Substance: EPOPROSTENOL
     Dosage: UNK
     Route: 042
  2. VELETRI [Suspect]
     Active Substance: EPOPROSTENOL
     Indication: PULMONARY ARTERIAL HYPERTENSION
     Dosage: 52 NG/KG, PER MIN
     Route: 042
     Dates: start: 20110616
  3. VELETRI [Suspect]
     Active Substance: EPOPROSTENOL
     Dosage: 52 NG/KG, PER MIN
     Route: 042
     Dates: start: 20110616
  4. COUMADIN [Concomitant]
     Active Substance: WARFARIN SODIUM
  5. ADCIRCA [Concomitant]
     Active Substance: TADALAFIL

REACTIONS (31)
  - Pain in jaw [Unknown]
  - Infection [Unknown]
  - Fatigue [Unknown]
  - Joint swelling [Recovering/Resolving]
  - Product dose omission issue [Unknown]
  - Hypotension [Unknown]
  - Arthritis [Unknown]
  - Hospitalisation [Unknown]
  - Pulmonary hypertension [Unknown]
  - Dyspepsia [Unknown]
  - Chapped lips [Unknown]
  - Catheter management [Unknown]
  - Musculoskeletal discomfort [Unknown]
  - Weight decreased [Unknown]
  - Device issue [Unknown]
  - Decreased appetite [Unknown]
  - Stent placement [Unknown]
  - Joint injury [Unknown]
  - Frequent bowel movements [Unknown]
  - Arthralgia [Not Recovered/Not Resolved]
  - Device occlusion [Recovered/Resolved]
  - Productive cough [Unknown]
  - Asthenia [Unknown]
  - Gait inability [Unknown]
  - Fall [Unknown]
  - Gait disturbance [Unknown]
  - Dyspnoea exertional [Unknown]
  - Cough [Not Recovered/Not Resolved]
  - Nasopharyngitis [Recovering/Resolving]
  - Device alarm issue [Unknown]
  - Diarrhoea [Unknown]
